FAERS Safety Report 10192376 (Version 1)
Quarter: 2014Q2

REPORT INFORMATION
  Report Type: Spontaneous
  Country: CA (occurrence: CA)
  Receive Date: 20140523
  Receipt Date: 20140523
  Transmission Date: 20141212
  Serious: Yes (Life-Threatening, Other)
  Sender: FDA-Public Use
  Company Number: CA-ACTAVIS-2014-11031

PATIENT
  Age: 64 Year
  Sex: Female

DRUGS (6)
  1. FENTANYL (UNKNOWN) [Suspect]
     Indication: INDUCTION OF ANAESTHESIA
     Dosage: 0.1 MG, UNKNOWN
     Route: 042
  2. MORPHINE (UNKNOWN) [Suspect]
     Indication: PERIOPERATIVE ANALGESIA
     Dosage: 0.025 MG/ML, UNKNOWN
     Route: 008
  3. MORPHINE (UNKNOWN) [Suspect]
     Dosage: 2 MG, UNKNOWN
     Route: 008
  4. DESFLURANE [Concomitant]
     Indication: GENERAL ANAESTHESIA
     Dosage: MINIMUM ALVEOLAR CONCENTRATION OF 0.6 TO 0.7
     Route: 065
  5. BUPIVACAINE [Concomitant]
     Indication: PERIOPERATIVE ANALGESIA
     Dosage: UNKNOWN 0.2%
     Route: 008
  6. BUPIVACAINE [Concomitant]
     Dosage: 10 ML, UNKNOWN 0.2%
     Route: 008

REACTIONS (2)
  - Respiratory depression [Recovered/Resolved]
  - Blood pressure decreased [Recovered/Resolved]
